FAERS Safety Report 23229749 (Version 1)
Quarter: 2023Q4

REPORT INFORMATION
  Report Type: Spontaneous
  Country: US (occurrence: None)
  Receive Date: 20231127
  Receipt Date: 20231127
  Transmission Date: 20240110
  Serious: No
  Sender: FDA-Public Use
  Company Number: US-ROCHE-3255866

PATIENT
  Sex: Female
  Weight: 57.204 kg

DRUGS (2)
  1. LUCENTIS [Suspect]
     Active Substance: RANIBIZUMAB
     Indication: Neovascular age-related macular degeneration
     Dosage: LAST DOSE ON /DEC/2022
     Route: 050
  2. AREDS 2 FORMULA [Concomitant]
     Indication: Product used for unknown indication
     Route: 065

REACTIONS (3)
  - Vitreous floaters [Not Recovered/Not Resolved]
  - Lacrimation increased [Not Recovered/Not Resolved]
  - Needle track marks [Not Recovered/Not Resolved]
